FAERS Safety Report 15683341 (Version 2)
Quarter: 2019Q1

REPORT INFORMATION
  Report Type: Spontaneous
  Country: IT (occurrence: IT)
  Receive Date: 20181204
  Receipt Date: 20190117
  Transmission Date: 20190417
  Serious: Yes (Other)
  Sender: FDA-Public Use
  Company Number: IT-TEVA-2018-IT-981324

PATIENT
  Age: 49 Year
  Sex: Female

DRUGS (2)
  1. FLURENT 8,75 MG PASTIGLIE GUSTO LIMONE E MIELE [Suspect]
     Active Substance: FLURBIPROFEN
     Indication: INFLUENZA
     Route: 048
     Dates: start: 20181026, end: 20181026
  2. ASPIRINA [Concomitant]
     Active Substance: ASPIRIN
     Indication: INFLUENZA
     Route: 048

REACTIONS (2)
  - Erythema [Recovered/Resolved]
  - Lip oedema [Recovered/Resolved]

NARRATIVE: CASE EVENT DATE: 20181026
